FAERS Safety Report 6434787-3 (Version None)
Quarter: 2009Q4

REPORT INFORMATION
  Report Type: 
  Country: None (occurrence: None)
  Receive Date: 20091110
  Receipt Date: 20091026
  Transmission Date: 20100525
  Serious: Yes (Life-Threatening, Hospitalization, Other)
  Sender: FDA-Public Use
  Company Number: JP-PFIZER INC-2009290532

PATIENT
  Age: 65 Year
  Sex: Female
  Weight: 60 kg

DRUGS (13)
  1. LIPITOR [Suspect]
     Indication: HYPERLIPIDAEMIA
     Dosage: 5 MG, 1X/DAY
     Route: 048
     Dates: start: 20030101
  2. GARENOXACIN [Suspect]
     Indication: BRONCHITIS
     Dosage: 400 MG, 1X/DAY
     Dates: start: 20091008, end: 20091010
  3. GARENOXACIN [Suspect]
     Indication: NASOPHARYNGITIS
  4. TIEKAPTO [Suspect]
     Indication: GASTRIC ULCER
     Dosage: 200 MG, 2X/DAY
  5. MICARDIS [Concomitant]
     Indication: HYPERTENSION
     Dosage: UNK
  6. MUCODYNE [Concomitant]
     Indication: PHARYNGEAL DISORDER
     Dosage: UNK
     Route: 048
     Dates: start: 20091008, end: 20091009
  7. MUCODYNE [Concomitant]
     Indication: UPPER RESPIRATORY TRACT INFLAMMATION
  8. TALION [Concomitant]
     Indication: PHARYNGEAL DISORDER
     Dosage: UNK
     Route: 048
     Dates: start: 20091008, end: 20091010
  9. TALION [Concomitant]
     Indication: UPPER RESPIRATORY TRACT INFLAMMATION
  10. BIOFERMIN [Concomitant]
  11. ALOSENN [Concomitant]
  12. RISEDRONATE SODIUM [Concomitant]
  13. LOXONIN [Concomitant]

REACTIONS (3)
  - ELECTROCARDIOGRAM QT PROLONGED [None]
  - LIVER DISORDER [None]
  - TORSADE DE POINTES [None]
